FAERS Safety Report 20194739 (Version 1)
Quarter: 2021Q4

REPORT INFORMATION
  Report Type: Spontaneous
  Country: US (occurrence: US)
  Receive Date: 20211216
  Receipt Date: 20211216
  Transmission Date: 20220303
  Serious: No
  Sender: FDA-Public Use
  Company Number: US-ELI_LILLY_AND_COMPANY-US202112006518

PATIENT
  Sex: Male

DRUGS (1)
  1. FORTEO [Suspect]
     Active Substance: TERIPARATIDE
     Indication: Osteogenesis imperfecta
     Dosage: UNK UNK, UNKNOWN
     Route: 065
     Dates: start: 20211026, end: 20211130

REACTIONS (5)
  - Influenza like illness [Recovered/Resolved]
  - Myalgia [Recovered/Resolved]
  - Constipation [Recovered/Resolved]
  - Arthralgia [Recovered/Resolved]
  - Off label use [Unknown]
